FAERS Safety Report 25084186 (Version 1)
Quarter: 2025Q1

REPORT INFORMATION
  Report Type: Spontaneous
  Country: US (occurrence: None)
  Receive Date: 20250316
  Receipt Date: 20250316
  Transmission Date: 20250408
  Serious: Yes (Hospitalization)
  Sender: FDA-CTU
  Company Number: None

PATIENT
  Sex: Male

DRUGS (1)
  1. PROCRIT [Suspect]
     Active Substance: ERYTHROPOIETIN
     Indication: Anaemia
     Dosage: 1 ML EVERY MONTH UNDER THE SKIN
     Route: 058
     Dates: start: 202411

REACTIONS (4)
  - Pneumonia [None]
  - Anaemia [None]
  - Bacteraemia [None]
  - Renal impairment [None]
